FAERS Safety Report 9667467 (Version 1)
Quarter: 2013Q4

REPORT INFORMATION
  Report Type: Spontaneous
  Country: US (occurrence: US)
  Receive Date: 20131101
  Receipt Date: 20131101
  Transmission Date: 20140711
  Serious: Yes (Other)
  Sender: FDA-Public Use
  Company Number: US-SAVIENT-2012S1000083

PATIENT
  Age: 44 Year
  Sex: Male
  Weight: 90.72 kg

DRUGS (16)
  1. KRYSTEXXA INJECTION [Suspect]
     Indication: GOUTY ARTHRITIS
     Route: 042
     Dates: start: 20120806, end: 20120806
  2. KRYSTEXXA INJECTION [Suspect]
     Indication: GOUTY ARTHRITIS
     Route: 042
     Dates: start: 20120713, end: 20120713
  3. BENADRYL /00000402/ [Concomitant]
     Indication: PREMEDICATION
     Route: 042
     Dates: start: 20120713, end: 20120713
  4. BENADRYL /00000402/ [Concomitant]
     Indication: PREMEDICATION
     Route: 042
     Dates: start: 20120806, end: 20120806
  5. SOLU-MEDROL [Concomitant]
     Indication: PREMEDICATION
     Route: 042
     Dates: start: 20120806, end: 20120806
  6. SOLU-MEDROL [Concomitant]
     Indication: PREMEDICATION
     Route: 042
     Dates: start: 20120713, end: 20120713
  7. ACETAMINOPHEN [Concomitant]
     Indication: PREMEDICATION
     Dates: start: 20120806, end: 20120806
  8. ACETAMINOPHEN [Concomitant]
     Indication: PREMEDICATION
     Dates: start: 20120713, end: 20120713
  9. COLCHICINE [Concomitant]
     Indication: GOUTY ARTHRITIS
     Dates: start: 1992
  10. ALLOPURINOL [Concomitant]
     Indication: GOUT
     Dates: end: 201207
  11. PREDNISONE [Concomitant]
     Indication: ASTHENIA
     Dates: start: 1992
  12. VICODIN [Concomitant]
     Indication: PAIN
     Dates: start: 2007
  13. PERCOCET /00446701/ [Concomitant]
     Indication: PAIN
     Dates: start: 2007
  14. LISINOPRIL [Concomitant]
     Indication: PULMONARY HYPERTENSION
     Dates: start: 2009
  15. LISINOPRIL [Concomitant]
     Indication: ANXIETY
     Dates: start: 2009
  16. FLOVENT [Concomitant]
     Indication: ASTHMA
     Dates: start: 2010

REACTIONS (2)
  - Infusion related reaction [Recovered/Resolved]
  - Therapeutic response decreased [Unknown]
